FAERS Safety Report 10154080 (Version 1)
Quarter: 2014Q2

REPORT INFORMATION
  Report Type: Report from Study
  Country: GB (occurrence: GB)
  Receive Date: 20140506
  Receipt Date: 20140506
  Transmission Date: 20141212
  Serious: Yes (Other)
  Sender: FDA-Public Use
  Company Number: GB-ROCHE-1394367

PATIENT
  Age: 64 Year
  Sex: Male

DRUGS (3)
  1. RANIBIZUMAB [Suspect]
     Indication: PRODUCT USED FOR UNKNOWN INDICATION
     Route: 050
     Dates: start: 20120820
  2. RANIBIZUMAB [Suspect]
     Route: 050
     Dates: start: 20121029
  3. XALATAN [Concomitant]
     Indication: GLAUCOMA
     Route: 065
     Dates: start: 199906, end: 20121212

REACTIONS (3)
  - Optic atrophy [Unknown]
  - Blindness [Not Recovered/Not Resolved]
  - Glaucoma [Not Recovered/Not Resolved]
